FAERS Safety Report 8069764-2 (Version None)
Quarter: 2012Q1

REPORT INFORMATION
  Report Type: 
  Country: None (occurrence: None)
  Receive Date: 20120125
  Receipt Date: 20120125
  Transmission Date: 20120608
  Serious: No
  Sender: FDA-Public Use
  Company Number: US-PFIZER INC-2012014034

PATIENT
  Age: 67 Year
  Sex: Male

DRUGS (2)
  1. PROTONIX [Suspect]
     Dosage: UNK, 2X/DAY
  2. PROTONIX [Suspect]
     Dosage: UNK, DAILY
     Dates: start: 20110101

REACTIONS (1)
  - DRUG SCREEN FALSE POSITIVE [None]
